FAERS Safety Report 21951822 (Version 1)
Quarter: 2023Q1

REPORT INFORMATION
  Report Type: Spontaneous
  Country: US (occurrence: None)
  Receive Date: 20230203
  Receipt Date: 20230203
  Transmission Date: 20230418
  Serious: No
  Sender: FDA-Public Use
  Company Number: 2023A026048

PATIENT
  Age: 53 Year
  Sex: Male

DRUGS (4)
  1. FARXIGA [Suspect]
     Active Substance: DAPAGLIFLOZIN PROPANEDIOL
     Route: 048
  2. TARPEYO [Suspect]
     Active Substance: BUDESONIDE
     Indication: IgA nephropathy
     Dates: start: 20220824
  3. TARPEYO [Suspect]
     Active Substance: BUDESONIDE
     Indication: Haematuria
     Dates: start: 20220824
  4. ARNICARE [Concomitant]
     Active Substance: HOMEOPATHICS
     Route: 003

REACTIONS (1)
  - Muscle spasms [Unknown]
